FAERS Safety Report 4388818-5 (Version None)
Quarter: 2004Q2

REPORT INFORMATION
  Report Type: 
  Country: None (occurrence: None)
  Receive Date: 20040624
  Receipt Date: 20040615
  Transmission Date: 20050107
  Serious: Yes (Hospitalization)
  Sender: FDA-Public Use
  Company Number: 207226

PATIENT
  Age: 21 Year
  Sex: Female

DRUGS (4)
  1. XOLAIR [Suspect]
     Indication: ASTHMA
     Dosage: 300 MG, Q2W,
     Dates: start: 20040301
  2. STEROIDS NOS [Concomitant]
  3. ADVAIR (SALMETEROL XINAFOATE, FLUTICASONE PROPIONATE) [Concomitant]
  4. PULMICORT [Concomitant]

REACTIONS (6)
  - DRUG TOLERANCE DECREASED [None]
  - HERPES SIMPLEX [None]
  - IMMUNOSUPPRESSION [None]
  - INFECTION [None]
  - NAUSEA [None]
  - VOMITING [None]
